FAERS Safety Report 7184893-3 (Version None)
Quarter: 2010Q4

REPORT INFORMATION
  Report Type: 
  Country: None (occurrence: None)
  Receive Date: 20101222
  Receipt Date: 20100527
  Transmission Date: 20110411
  Serious: Yes (Other)
  Sender: FDA-Public Use
  Company Number: US-AMGEN-KDL414962

PATIENT

DRUGS (1)
  1. ENBREL [Suspect]
     Indication: PSORIASIS
     Dosage: 25 MG, 2 TIMES/WK
     Route: 058
     Dates: start: 20030501

REACTIONS (5)
  - GLUCOSE TOLERANCE IMPAIRED [None]
  - OPEN WOUND [None]
  - PSORIASIS [None]
  - SKIN CANCER [None]
  - URINARY TRACT INFECTION [None]
